FAERS Safety Report 8392122-8 (Version None)
Quarter: 2012Q2

REPORT INFORMATION
  Report Type: 
  Country: None (occurrence: None)
  Receive Date: 20120529
  Receipt Date: 20120515
  Transmission Date: 20120825
  Serious: Yes (Hospitalization)
  Sender: FDA-Public Use
  Company Number: US-MYLANLABS-2012S1010241

PATIENT
  Age: 54 Year
  Sex: Female

DRUGS (4)
  1. METFORMIN HCL [Suspect]
     Dosage: 5MG DAILY
     Route: 065
  2. LISINOPRIL [Suspect]
     Dosage: 5MG DAILY
     Route: 065
  3. SIMVASTATIN [Concomitant]
     Dosage: 20MG DAILY
     Route: 065
  4. METFORMIN HCL [Suspect]
     Route: 065

REACTIONS (5)
  - LACTIC ACIDOSIS [None]
  - RESPIRATORY DISTRESS [None]
  - RENAL FAILURE ACUTE [None]
  - HYPOTHERMIA [None]
  - CONDITION AGGRAVATED [None]
